FAERS Safety Report 6282917-9 (Version None)
Quarter: 2009Q3

REPORT INFORMATION
  Report Type: 
  Country: None (occurrence: None)
  Receive Date: 20090724
  Receipt Date: 20090721
  Transmission Date: 20100115
  Serious: Yes (Other)
  Sender: FDA-Public Use
  Company Number: US-MERCK-0907USA03378

PATIENT
  Sex: Female
  Weight: 59 kg

DRUGS (2)
  1. ISENTRESS [Suspect]
     Route: 048
     Dates: start: 20090601
  2. KALETRA [Concomitant]
     Route: 048
     Dates: start: 20090601

REACTIONS (1)
  - RASH PRURITIC [None]
